FAERS Safety Report 18539917 (Version 3)
Quarter: 2020Q4

REPORT INFORMATION
  Report Type: Spontaneous
  Country: FR (occurrence: FR)
  Receive Date: 20201124
  Receipt Date: 20201202
  Transmission Date: 20210114
  Serious: Yes (Other)
  Sender: FDA-Public Use
  Company Number: FR-PFIZER INC-2020463716

PATIENT
  Age: 46 Year
  Sex: Male

DRUGS (4)
  1. CORTICOSTEROID NOS [Concomitant]
     Active Substance: CORTICOSTEROID NOS
     Dosage: UNK
     Route: 065
  2. IMETH [Suspect]
     Active Substance: METHOTREXATE SODIUM
     Indication: SPONDYLITIS
     Dosage: 15 MG, WEEKLY
     Route: 048
     Dates: start: 202004, end: 202004
  3. INEXIUM [ESOMEPRAZOLE MAGNESIUM] [Concomitant]
     Active Substance: ESOMEPRAZOLE MAGNESIUM
     Dosage: UNK
     Route: 065
  4. IMETH [Suspect]
     Active Substance: METHOTREXATE SODIUM
     Dosage: 20 MG, WEEKLY (8 TABLETS)
     Route: 048
     Dates: start: 202004, end: 202004

REACTIONS (14)
  - General physical health deterioration [Not Recovered/Not Resolved]
  - Salivary hypersecretion [Unknown]
  - Intentional product misuse [Unknown]
  - Vomiting [Unknown]
  - Off label use [Unknown]
  - Pyrexia [Unknown]
  - Blood lactate dehydrogenase increased [Unknown]
  - Blood creatinine increased [Unknown]
  - Mobility decreased [Unknown]
  - Cough [Unknown]
  - Dysphagia [Unknown]
  - Pneumonia [Unknown]
  - Nausea [Unknown]
  - Dizziness [Unknown]

NARRATIVE: CASE EVENT DATE: 202004
